FAERS Safety Report 5586347-4 (Version None)
Quarter: 2008Q1

REPORT INFORMATION
  Report Type: 
  Country: None (occurrence: None)
  Receive Date: 20080110
  Receipt Date: 20080108
  Transmission Date: 20080703
  Serious: Yes (Life-Threatening, Hospitalization)
  Sender: FDA-Public Use
  Company Number: PHBS2007TR21385

PATIENT
  Age: 12 Year
  Sex: Male
  Weight: 35 kg

DRUGS (3)
  1. CELLCEPT [Concomitant]
     Indication: RENAL TRANSPLANT
     Dosage: 1 DF, TID
     Route: 048
  2. SANDIMMUNE [Suspect]
     Indication: RENAL TRANSPLANT
     Dosage: 75 MG, BID
     Route: 048
     Dates: end: 20071213
  3. DELTACORTRIL [Concomitant]
     Dosage: 15 MG, QD
     Route: 048

REACTIONS (13)
  - BRAIN OEDEMA [None]
  - CENTRAL NERVOUS SYSTEM NECROSIS [None]
  - COMA [None]
  - COMPLICATIONS OF TRANSPLANTED KIDNEY [None]
  - ENDOTRACHEAL INTUBATION [None]
  - HEADACHE [None]
  - HYDROCEPHALUS [None]
  - INCORRECT DOSE ADMINISTERED [None]
  - INFLAMMATION [None]
  - NEUROTOXICITY [None]
  - RENAL IMPAIRMENT [None]
  - RENAL TUBULAR NECROSIS [None]
  - SURGICAL VASCULAR SHUNT [None]
